FAERS Safety Report 10729617 (Version 1)
Quarter: 2015Q1

REPORT INFORMATION
  Report Type: Spontaneous
  Country: US (occurrence: None)
  Receive Date: 20150112
  Receipt Date: 20150112
  Transmission Date: 20150721
  Serious: Yes (Other)
  Sender: FDA-Public Use
  Company Number: 2014AP001427

PATIENT
  Age: 27 Year
  Sex: Female

DRUGS (5)
  1. CYCLOPHOSPHAMIDE (CYCLOPHOSPHAMIDE) [Concomitant]
     Active Substance: CYCLOPHOSPHAMIDE
  2. PREDNISONE (PREDNISONE) [Concomitant]
     Active Substance: PREDNISONE
  3. MYCOPHENOLATE MOFETIL. [Suspect]
     Active Substance: MYCOPHENOLATE MOFETIL
  4. HYDROXYCHOROQUINE (HYDROXYCHLOROQUINE) [Concomitant]
  5. METHOTREXATE (METHOTREXATE) [Concomitant]
     Active Substance: METHOTREXATE

REACTIONS (1)
  - Hypersensitivity [None]
